FAERS Safety Report 12952602 (Version 2)
Quarter: 2016Q4

REPORT INFORMATION
  Report Type: Spontaneous
  Country: DE (occurrence: DE)
  Receive Date: 20161117
  Receipt Date: 20161214
  Transmission Date: 20170207
  Serious: Yes (Hospitalization, Other)
  Sender: FDA-Public Use
  Company Number: DE-BRISTOL-MYERS SQUIBB COMPANY-BMS-2016-097318

PATIENT
  Age: 49 Year
  Sex: Male

DRUGS (1)
  1. ELIQUIS [Suspect]
     Active Substance: APIXABAN
     Indication: EMBOLISM VENOUS
     Dosage: 5 MG, BID
     Route: 065
     Dates: start: 20161019, end: 20161026

REACTIONS (5)
  - Catheter placement [Unknown]
  - Lymphoma [Unknown]
  - Subclavian vein thrombosis [Unknown]
  - Device related thrombosis [Unknown]
  - Antiphospholipid syndrome [Unknown]

NARRATIVE: CASE EVENT DATE: 20161026
